FAERS Safety Report 20969424 (Version 1)
Quarter: 2022Q2

REPORT INFORMATION
  Report Type: Spontaneous
  Country: GB (occurrence: GB)
  Receive Date: 20220616
  Receipt Date: 20220616
  Transmission Date: 20220720
  Serious: Yes (Other)
  Sender: FDA-Public Use
  Company Number: GB-MHRA-MED-202206081827152340-YSFDJ

PATIENT
  Age: 60 Year
  Sex: Female
  Weight: 84 kg

DRUGS (3)
  1. RANOLAZINE [Suspect]
     Active Substance: RANOLAZINE
     Indication: Angina pectoris
     Dosage: 375 MG, QD IN THE MORNING
     Route: 065
     Dates: start: 20220602
  2. ISOSORBIDE [Suspect]
     Active Substance: ISOSORBIDE
     Indication: Angina pectoris
     Dosage: 30 MG, QD IN THE MORNING
     Route: 065
     Dates: start: 20220602
  3. DILTIAZEM HYDROCHLORIDE [Concomitant]
     Active Substance: DILTIAZEM HYDROCHLORIDE
     Indication: Angina pectoris
     Dosage: UNK
     Dates: start: 20220602

REACTIONS (2)
  - Persistent postural-perceptual dizziness [Not Recovered/Not Resolved]
  - Off label use [Unknown]

NARRATIVE: CASE EVENT DATE: 20220602
